FAERS Safety Report 7399622-8 (Version None)
Quarter: 2011Q2

REPORT INFORMATION
  Report Type: 
  Country: None (occurrence: None)
  Receive Date: 20110407
  Receipt Date: 20110217
  Transmission Date: 20111010
  Serious: Yes (Hospitalization)
  Sender: FDA-Public Use
  Company Number: US-BAYER-201020423NA

PATIENT
  Sex: Female
  Weight: 81.818 kg

DRUGS (31)
  1. LIPITOR [Concomitant]
     Indication: CEREBROVASCULAR ACCIDENT PROPHYLAXIS
     Route: 048
  2. NICODERM [Concomitant]
  3. NIMODIPINE [Concomitant]
  4. FLONASE [Concomitant]
     Dosage: UNK
     Dates: start: 20051008
  5. UNCODEABLE ^UNCLASSIFIABLE^ [Concomitant]
     Route: 048
  6. GUAIFENESIN/CODEINE [Concomitant]
     Dosage: UNK
     Dates: start: 20050112
  7. UNCODEABLE ^UNCLASSIFIABLE^ [Concomitant]
     Route: 048
  8. NEOMYCIN [Concomitant]
     Dosage: UNK
     Dates: start: 20050112
  9. YASMIN [Suspect]
     Dosage: UNK
     Route: 048
     Dates: start: 20041216, end: 20050112
  10. UNCODEABLE ^UNCLASSIFIABLE^ [Concomitant]
     Indication: COUGH
     Dosage: 10 ML, UNK
     Route: 048
  11. YASMIN [Suspect]
     Indication: OVARIAN CYST
     Route: 048
     Dates: start: 20041020, end: 20051129
  12. FLONASE [Concomitant]
     Dosage: UNK
     Route: 045
     Dates: start: 20050425
  13. AMOXICILLIN [Concomitant]
     Dosage: 250 MG, TID
     Route: 048
  14. E-MYCIN [Concomitant]
     Dosage: 333 MG, UNK
     Route: 048
  15. SODIUM CHLORIDE [Concomitant]
     Dosage: UNK UNK, Q2HR
     Route: 048
  16. DOXYCYCLINE [Concomitant]
     Dosage: 10 MG, UNK
     Dates: start: 20050112
  17. YASMIN [Suspect]
     Dosage: UNK
     Dates: start: 20050615, end: 20051008
  18. ASPIRIN [Concomitant]
     Indication: CEREBROVASCULAR ACCIDENT PROPHYLAXIS
     Route: 048
  19. LOVENOX [Concomitant]
  20. BIAXIN [Concomitant]
     Dosage: UNK UNK, BID
     Route: 048
  21. FEXOFENADINE [Concomitant]
     Dosage: 60 MG, UNK
     Dates: start: 20051102
  22. YASMIN [Suspect]
     Dosage: UNK
     Dates: start: 20050219, end: 20050319
  23. UNCODEABLE ^UNCLASSIFIABLE^ [Concomitant]
  24. UNCODEABLE ^UNCLASSIFIABLE^ [Concomitant]
     Route: 048
  25. FERROUS SULFATE TAB [Concomitant]
     Indication: MENSTRUAL DISORDER
     Route: 048
  26. ALLEGRA [Concomitant]
     Dosage: 60 MG, UNK
     Dates: start: 20050425
  27. SEPTRA DS [Concomitant]
     Dosage: UNK UNK, BID
     Route: 048
  28. ADVIL LIQUI-GELS [Concomitant]
     Dosage: UNK
     Dates: start: 20050615
  29. VERAPAMIL SLOW RELEASE [Concomitant]
     Indication: RAYNAUD'S PHENOMENON
     Route: 048
  30. ALLEGRA [Concomitant]
     Dosage: 60 MG, UNK
     Dates: start: 20050126
  31. TESSALON [Concomitant]
     Route: 048

REACTIONS (6)
  - HEADACHE [None]
  - ISCHAEMIC STROKE [None]
  - DYSARTHRIA [None]
  - CEREBRAL INFARCTION [None]
  - APHASIA [None]
  - MIGRAINE [None]
